FAERS Safety Report 9840867 (Version 1)
Quarter: 2014Q1

REPORT INFORMATION
  Report Type: Report from Study
  Country: GB (occurrence: GB)
  Receive Date: 20140124
  Receipt Date: 20140124
  Transmission Date: 20141002
  Serious: Yes (Hospitalization)
  Sender: FDA-Public Use
  Company Number: GB-AMGEN-GBRCT2014004743

PATIENT
  Age: 72 Year
  Sex: Female

DRUGS (10)
  1. ETANERCEPT [Suspect]
     Indication: PRODUCT USED FOR UNKNOWN INDICATION
     Dosage: UNK
     Route: 065
     Dates: start: 20030914
  2. ASPIRIN [Concomitant]
     Dosage: 75 MG, UNK
  3. FOLIC ACID [Concomitant]
     Dosage: UNK UNK, UNK
  4. METHOTREXATE [Concomitant]
     Dosage: 17.5 MG, UNK
  5. RISEDRONATE [Concomitant]
     Dosage: UNK UNK, UNK
  6. RAMIPRIL [Concomitant]
     Dosage: 10 MG, UNK
  7. OMEPRAZOLE [Concomitant]
     Dosage: 20 MG, UNK
  8. METOPROLOL [Concomitant]
     Dosage: 25 MG, 2X/DAY
  9. LEVOTHYROXINE [Concomitant]
     Dosage: 75 UG, UNK
  10. CYANOCOBALAMIN [Concomitant]
     Dosage: UNK UNK, UNK

REACTIONS (1)
  - Chest pain [Unknown]
